FAERS Safety Report 17536695 (Version 4)
Quarter: 2020Q2

REPORT INFORMATION
  Report Type: Report from Study
  Country: CA (occurrence: CA)
  Receive Date: 20200313
  Receipt Date: 20200507
  Transmission Date: 20200713
  Serious: No
  Sender: FDA-Public Use
  Company Number: CA-ROCHE-2566739

PATIENT
  Age: 30 Year
  Sex: Female

DRUGS (1)
  1. OCREVUS [Suspect]
     Active Substance: OCRELIZUMAB
     Indication: RELAPSING-REMITTING MULTIPLE SCLEROSIS
     Dosage: DAY 0, 14 THEN 600 MG Q 6 M ; 300 MG AT DAY 0 AND 14, THEN 600 MG EVERY 6 MONTH
     Route: 042
     Dates: start: 20200224

REACTIONS (9)
  - Dyspnoea [Not Recovered/Not Resolved]
  - Abscess oral [Recovering/Resolving]
  - Infusion related reaction [Recovered/Resolved]
  - Oral herpes [Unknown]
  - Tonsillar hypertrophy [Recovering/Resolving]
  - Oral fungal infection [Unknown]
  - Pain in extremity [Not Recovered/Not Resolved]
  - Abscess of salivary gland [Recovered/Resolved]
  - Gastroenteritis viral [Recovered/Resolved]

NARRATIVE: CASE EVENT DATE: 20200224
